FAERS Safety Report 10650594 (Version 2)
Quarter: 2015Q4

REPORT INFORMATION
  Report Type: Spontaneous
  Country: US (occurrence: US)
  Receive Date: 20141214
  Receipt Date: 20151107
  Transmission Date: 20160304
  Serious: No
  Sender: FDA-Public Use
  Company Number: US-BAUSCH-SYM-2014-22952

PATIENT
  Age: 62 Year
  Sex: Female

DRUGS (4)
  1. XENAZINE [Suspect]
     Active Substance: TETRABENAZINE
     Dosage: ? TABLET IN THE MORNING AND 1 TABLET AT NIGHT
     Route: 048
     Dates: start: 2014
  2. XENAZINE [Suspect]
     Active Substance: TETRABENAZINE
     Route: 048
     Dates: start: 2014
  3. XENAZINE [Suspect]
     Active Substance: TETRABENAZINE
     Dosage: TOOK 1 TABLET IN THE MORNING INSTEAD OF ? TABLET
     Route: 048
  4. XENAZINE [Suspect]
     Active Substance: TETRABENAZINE
     Indication: HUNTINGTON^S DISEASE
     Dosage: ? TABLET EVERY MORNING X 1 WEEK THEN AS DIRECTED
     Route: 048
     Dates: start: 20140702

REACTIONS (5)
  - Depression [Recovered/Resolved]
  - Medication error [Unknown]
  - Somnolence [Recovered/Resolved]
  - Feeling abnormal [Recovered/Resolved]
  - Huntington^s disease [Recovered/Resolved]

NARRATIVE: CASE EVENT DATE: 2014
